FAERS Safety Report 25842138 (Version 1)
Quarter: 2025Q3

REPORT INFORMATION
  Report Type: Report from Study
  Country: BR (occurrence: BR)
  Receive Date: 20250924
  Receipt Date: 20250924
  Transmission Date: 20251021
  Serious: Yes (Other)
  Sender: JOHNSON AND JOHNSON
  Company Number: BR-JNJFOC-20250929003

PATIENT
  Age: 57 Year
  Sex: Female
  Weight: 68 kg

DRUGS (1)
  1. REMICADE [Suspect]
     Active Substance: INFLIXIMAB
     Indication: Crohn^s disease
     Route: 065
     Dates: start: 2013

REACTIONS (4)
  - Intestinal obstruction [Unknown]
  - Intestinal operation [Unknown]
  - Skin fissures [Unknown]
  - Fungal infection [Unknown]

NARRATIVE: CASE EVENT DATE: 20250501
